FAERS Safety Report 17769809 (Version 2)
Quarter: 2020Q2

REPORT INFORMATION
  Report Type: Spontaneous
  Country: US (occurrence: US)
  Receive Date: 20200512
  Receipt Date: 20200515
  Transmission Date: 20200714
  Serious: No
  Sender: FDA-Public Use
  Company Number: US-PFIZER INC-2020188283

PATIENT
  Age: 80 Year
  Sex: Female
  Weight: 59.87 kg

DRUGS (1)
  1. LYRICA [Suspect]
     Active Substance: PREGABALIN
     Indication: FIBROMYALGIA
     Dosage: UNK, 2X/DAY (TWICE A DAY)
     Dates: end: 201911

REACTIONS (1)
  - No adverse event [Not Recovered/Not Resolved]
